FAERS Safety Report 23276127 (Version 3)
Quarter: 2024Q1

REPORT INFORMATION
  Report Type: Report from Study
  Country: CA (occurrence: None)
  Receive Date: 20231208
  Receipt Date: 20240105
  Transmission Date: 20240409
  Serious: Yes (Death, Hospitalization, Other)
  Sender: FDA-Public Use
  Company Number: 2023A269016

PATIENT
  Age: 23597 Day
  Sex: Male

DRUGS (1)
  1. IMFINZI [Suspect]
     Active Substance: DURVALUMAB
     Indication: Biliary neoplasm
     Route: 042
     Dates: start: 20231025

REACTIONS (3)
  - Death [Fatal]
  - Sepsis [Unknown]
  - Hypertension [Unknown]

NARRATIVE: CASE EVENT DATE: 20231212
